FAERS Safety Report 17399459 (Version 1)
Quarter: 2020Q1

REPORT INFORMATION
  Report Type: Spontaneous
  Country: US (occurrence: US)
  Receive Date: 20200211
  Receipt Date: 20200211
  Transmission Date: 20200409
  Serious: Yes (Hospitalization)
  Sender: FDA-Public Use
  Company Number: US-ROCHE-2544117

PATIENT
  Age: 14 Year
  Sex: Female

DRUGS (2)
  1. PULMOZYME [Suspect]
     Active Substance: DORNASE ALFA
     Indication: PRODUCT USED FOR UNKNOWN INDICATION
     Dosage: 1MG/ML AMP REFRIG
     Route: 055
     Dates: start: 2018
  2. KALYDECO [Concomitant]
     Active Substance: IVACAFTOR

REACTIONS (1)
  - Pancreatitis [Unknown]

NARRATIVE: CASE EVENT DATE: 20200118
